FAERS Safety Report 23150789 (Version 2)
Quarter: 2023Q4

REPORT INFORMATION
  Report Type: Spontaneous
  Country: IL (occurrence: IL)
  Receive Date: 20231106
  Receipt Date: 20231109
  Transmission Date: 20240110
  Serious: Yes (Life-Threatening, Hospitalization, Other)
  Sender: FDA-Public Use
  Company Number: IL-SA-SAC20231101001680

PATIENT
  Age: 41 Year

DRUGS (1)
  1. LANTUS [Suspect]
     Active Substance: INSULIN GLARGINE
     Dosage: UNK
     Route: 065

REACTIONS (5)
  - Diabetic ketoacidosis [Recovering/Resolving]
  - Brain fog [Recovering/Resolving]
  - Dizziness [Recovering/Resolving]
  - Emotional distress [Unknown]
  - Syringe issue [Unknown]

NARRATIVE: CASE EVENT DATE: 20230601
